FAERS Safety Report 8077593-9 (Version None)
Quarter: 2012Q1

REPORT INFORMATION
  Report Type: 
  Country: None (occurrence: None)
  Receive Date: 20120127
  Receipt Date: 20120123
  Transmission Date: 20120608
  Serious: Yes (Hospitalization)
  Sender: FDA-Public Use
  Company Number: BR-PFIZER INC-2012019324

PATIENT
  Age: 67 Year
  Sex: Male

DRUGS (2)
  1. XALATAN [Suspect]
     Dosage: UNK
     Route: 047
  2. ASPIRIN [Concomitant]

REACTIONS (1)
  - ATRIAL FIBRILLATION [None]
